FAERS Safety Report 8841877 (Version 2)
Quarter: 2012Q4

REPORT INFORMATION
  Report Type: 
  Country: US (occurrence: None)
  Receive Date: 20121016
  Receipt Date: 20121017
  Transmission Date: 20130627
  Serious: Yes (Other)
  Sender: FDA-Public Use
  Company Number: None

PATIENT
  Age: 74 Year
  Sex: Female
  Weight: 49.9 kg

DRUGS (3)
  1. STEROID INJECTION N/A NEW ENGLAND COMPOUNDING [Suspect]
     Indication: NERVE PAIN
     Dates: start: 20120925, end: 20121005
  2. STEROID INJECTION N/A NEW ENGLAND COMPOUNDING [Suspect]
     Indication: LOW BACK PAIN
     Dates: start: 20120925, end: 20121005
  3. SPINAL TAP [Concomitant]

REACTIONS (3)
  - Headache [None]
  - No therapeutic response [None]
  - General symptom [None]
